FAERS Safety Report 9378876 (Version 1)
Quarter: 2013Q2

REPORT INFORMATION
  Report Type: Spontaneous
  Country: US (occurrence: None)
  Receive Date: 20130626
  Receipt Date: 20130626
  Transmission Date: 20140414
  Serious: Yes (Life-Threatening)
  Sender: FDA-Public Use
  Company Number: 1755658

PATIENT
  Age: 51 Year
  Sex: Female

DRUGS (4)
  1. IRINOTECAN HYDROCHLORIDE [Suspect]
     Route: 041
  2. (OXALIPLATIN) [Suspect]
     Route: 041
  3. CALCIUM FOLINATE [Suspect]
     Route: 041
  4. FLUOROURACIL [Suspect]
     Route: 041

REACTIONS (13)
  - Leukoencephalopathy [None]
  - Ventricular hypokinesia [None]
  - Ejection fraction decreased [None]
  - Intracardiac thrombus [None]
  - Renal failure [None]
  - Pancytopenia [None]
  - Nausea [None]
  - Vomiting [None]
  - Mental status changes [None]
  - Ammonia increased [None]
  - Depressed level of consciousness [None]
  - Pulmonary oedema [None]
  - Pleural effusion [None]
